FAERS Safety Report 7199692-6 (Version None)
Quarter: 2010Q4

REPORT INFORMATION
  Report Type: 
  Country: None (occurrence: None)
  Receive Date: 20101228
  Receipt Date: 20101223
  Transmission Date: 20110411
  Serious: Yes (Death)
  Sender: FDA-Public Use
  Company Number: AU-ASTRAZENECA-2010SE57126

PATIENT
  Age: 99 Year
  Sex: Female

DRUGS (3)
  1. NEXIUM [Interacting]
     Route: 048
  2. CRESTOR [Suspect]
     Route: 048
  3. ROXITHROMYCIN [Interacting]
     Route: 065

REACTIONS (4)
  - DRUG INTERACTION [None]
  - MUSCLE INJURY [None]
  - RENAL FAILURE [None]
  - RHABDOMYOLYSIS [None]
